FAERS Safety Report 24411803 (Version 1)
Quarter: 2024Q4

REPORT INFORMATION
  Report Type: Spontaneous
  Country: ES (occurrence: ES)
  Receive Date: 20241008
  Receipt Date: 20241008
  Transmission Date: 20250115
  Serious: Yes (Other)
  Sender: MYLAN
  Company Number: ES-MYLANLABS-2024M1091138

PATIENT
  Age: 55 Year
  Sex: Female

DRUGS (8)
  1. PREGABALIN [Suspect]
     Active Substance: PREGABALIN
     Indication: Neck pain
     Dosage: UNK
     Route: 065
  2. TRAMADOL [Suspect]
     Active Substance: TRAMADOL
     Indication: Neck pain
     Dosage: UNK
     Route: 065
  3. AMITRIPTYLINE [Suspect]
     Active Substance: AMITRIPTYLINE
     Indication: Neck pain
     Dosage: UNK
     Route: 065
  4. BOTULINUM TOXIN NOS [Suspect]
     Active Substance: BOTULINUM TOXIN NOS
     Indication: Neck pain
     Dosage: UNK
     Route: 065
  5. MYCOPHENOLATE MOFETIL [Concomitant]
     Active Substance: MYCOPHENOLATE MOFETIL
     Indication: Vogt-Koyanagi-Harada disease
     Dosage: UNK
     Route: 065
  6. FLURAZEPAM [Concomitant]
     Active Substance: FLURAZEPAM HYDROCHLORIDE
     Indication: Insomnia
     Dosage: UNK
     Route: 065
  7. VENLAFAXINE [Concomitant]
     Active Substance: VENLAFAXINE HYDROCHLORIDE
     Indication: Depression
     Dosage: UNK
     Route: 065
  8. TRAZODONE [Concomitant]
     Active Substance: TRAZODONE HYDROCHLORIDE
     Indication: Depression
     Dosage: UNK
     Route: 065

REACTIONS (1)
  - Drug ineffective [Unknown]
